FAERS Safety Report 12528516 (Version 3)
Quarter: 2016Q3

REPORT INFORMATION
  Report Type: Spontaneous
  Country: SE (occurrence: SE)
  Receive Date: 20160705
  Receipt Date: 20160901
  Transmission Date: 20161109
  Serious: Yes (Congenital Anomaly)
  Sender: FDA-Public Use
  Company Number: SE-PFIZER INC-2016321609

PATIENT
  Sex: Male

DRUGS (2)
  1. LERGIGAN /00033002/ [Suspect]
     Active Substance: PROMETHAZINE\PROMETHAZINE HYDROCHLORIDE
     Dosage: 1-2 DF, DAILY
     Route: 064
     Dates: start: 20160407, end: 201605
  2. FRAGMIN [Suspect]
     Active Substance: DALTEPARIN SODIUM
     Indication: PROTEIN S DEFICIENCY
     Dosage: 5000 IU, 1X/DAY
     Route: 064
     Dates: start: 20160301

REACTIONS (2)
  - Foetal cardiac disorder [Unknown]
  - Maternal exposure during pregnancy [Unknown]
